FAERS Safety Report 4877949-9 (Version None)
Quarter: 2005Q4

REPORT INFORMATION
  Report Type: 
  Country: None (occurrence: None)
  Receive Date: 20051206
  Receipt Date: 20050909
  Transmission Date: 20060501
  Serious: No
  Sender: FDA-Public Use
  Company Number: USA0509107746

PATIENT
  Sex: Female

DRUGS (7)
  1. CYMBALTA [Suspect]
     Indication: NEOPLASM MALIGNANT
     Dosage: 30 MG DAY
     Dates: start: 20050803
  2. CYMBALTA [Suspect]
     Indication: NEUROPATHY
     Dosage: 30 MG DAY
     Dates: start: 20050803
  3. LITHIUM [Concomitant]
  4. DIOVAN [Concomitant]
  5. LIPITOR [Concomitant]
  6. FLONASE [Concomitant]
  7. FOSAMAX [Concomitant]

REACTIONS (3)
  - ASTHENOPIA [None]
  - HYPOAESTHESIA [None]
  - PAIN IN EXTREMITY [None]
